FAERS Safety Report 7521430-5 (Version None)
Quarter: 2011Q2

REPORT INFORMATION
  Report Type: 
  Country: None (occurrence: None)
  Receive Date: 20110531
  Receipt Date: 20110513
  Transmission Date: 20111010
  Serious: Yes (Other)
  Sender: FDA-Public Use
  Company Number: US-DEXPHARM-20110545

PATIENT
  Sex: Male
  Weight: 84 kg

DRUGS (4)
  1. OMEPRAZOLE [Suspect]
     Dosage: 20 MG ONCE A DAY, ORAL
     Route: 048
     Dates: start: 20110510, end: 20110510
  2. FLUOXETINE [Concomitant]
  3. MULTI-VITAMINS [Concomitant]
  4. LIPITOR [Concomitant]

REACTIONS (4)
  - URTICARIA [None]
  - SWOLLEN TONGUE [None]
  - DYSPNOEA [None]
  - DRUG HYPERSENSITIVITY [None]
